FAERS Safety Report 9369606 (Version 1)
Quarter: 2013Q2

REPORT INFORMATION
  Report Type: Spontaneous
  Country: US (occurrence: US)
  Receive Date: 20130626
  Receipt Date: 20130626
  Transmission Date: 20140414
  Serious: No
  Sender: FDA-Public Use
  Company Number: US-MYLANLABS-2013S1002472

PATIENT
  Age: 68 Year
  Sex: Female
  Weight: 74.39 kg

DRUGS (5)
  1. PERFOROMIST (FORMOTEROL FUMARATE) INHALATION SOLUTION [Suspect]
     Indication: COUGH
     Route: 055
     Dates: start: 201301, end: 20130127
  2. PERFOROMIST (FORMOTEROL FUMARATE) INHALATION SOLUTION [Suspect]
     Indication: CHRONIC OBSTRUCTIVE PULMONARY DISEASE
     Route: 055
     Dates: start: 201301, end: 20130127
  3. SPIRIVA [Concomitant]
  4. MAXAIR [Concomitant]
  5. SINGULAR [Concomitant]

REACTIONS (2)
  - Dry mouth [Recovering/Resolving]
  - Body temperature increased [Not Recovered/Not Resolved]
